FAERS Safety Report 7524469-9 (Version None)
Quarter: 2011Q2

REPORT INFORMATION
  Report Type: 
  Country: None (occurrence: None)
  Receive Date: 20110606
  Receipt Date: 20110523
  Transmission Date: 20111010
  Serious: Yes (Life-Threatening, Hospitalization)
  Sender: FDA-Public Use
  Company Number: NL-JNJFOC-20060700562

PATIENT
  Sex: Male
  Weight: 86.5 kg

DRUGS (7)
  1. INFLIXIMAB [Suspect]
     Route: 042
     Dates: start: 20031206
  2. FOSAMAX [Concomitant]
     Indication: OSTEOPOROSIS PROPHYLAXIS
     Dates: start: 19990101
  3. INFLIXIMAB [Suspect]
     Indication: CROHN'S DISEASE
     Route: 042
     Dates: start: 20031120
  4. AZATHIOPRINE [Concomitant]
     Indication: CROHN'S DISEASE
  5. MESALAMINE [Concomitant]
     Indication: CROHN'S DISEASE
  6. BUDESONIDE [Concomitant]
     Indication: CROHN'S DISEASE
     Dates: start: 19990101
  7. PREDNISONE [Concomitant]
     Indication: CROHN'S DISEASE
     Dates: start: 19991101

REACTIONS (1)
  - INTESTINAL RESECTION [None]
